FAERS Safety Report 13695767 (Version 2)
Quarter: 2018Q4

REPORT INFORMATION
  Report Type: Spontaneous
  Country: IT (occurrence: IT)
  Receive Date: 20170627
  Receipt Date: 20181226
  Transmission Date: 20190204
  Serious: Yes (Hospitalization, Other)
  Sender: FDA-Public Use
  Company Number: PHHY2017IT091437

PATIENT
  Age: 59 Year
  Sex: Male

DRUGS (2)
  1. ACETYLSALICYLIC ACID [Suspect]
     Active Substance: ASPIRIN
     Indication: PRODUCT USED FOR UNKNOWN INDICATION
     Dosage: 100 MG, UNK
     Route: 065
  2. KETOROLAC [Suspect]
     Active Substance: KETOROLAC\KETOROLAC TROMETHAMINE
     Indication: BACK PAIN
     Dosage: 60 MG, UNK
     Route: 030

REACTIONS (4)
  - Product use in unapproved indication [Unknown]
  - Gastric ulcer [Unknown]
  - Product prescribing error [Unknown]
  - Off label use [Unknown]
